FAERS Safety Report 9915582 (Version 1)
Quarter: 2014Q1

REPORT INFORMATION
  Report Type: Spontaneous
  Country: US (occurrence: US)
  Receive Date: 20140221
  Receipt Date: 20140221
  Transmission Date: 20141002
  Serious: Yes (Other)
  Sender: FDA-Public Use
  Company Number: US-DRREDDYS-USA/USA/14/0038181

PATIENT
  Age: 18 Year
  Sex: Male
  Weight: 72.64 kg

DRUGS (8)
  1. ZENATANE [Suspect]
     Indication: ACNE
     Route: 065
     Dates: start: 20130807, end: 20130909
  2. ZENATANE [Suspect]
     Route: 065
     Dates: start: 20131112, end: 20131217
  3. MYORISAN [Suspect]
     Indication: ACNE
     Route: 048
     Dates: start: 20130703, end: 20130806
  4. MYORISAN [Suspect]
     Route: 065
     Dates: start: 20130910, end: 20131011
  5. MYORISAN [Suspect]
     Route: 065
     Dates: start: 20131012, end: 20131111
  6. MYORISAN [Suspect]
     Route: 065
     Dates: start: 20131218, end: 20140123
  7. CUTIVATE [Concomitant]
     Indication: PRODUCT USED FOR UNKNOWN INDICATION
     Route: 065
  8. MELATONIN [Concomitant]
     Indication: PRODUCT USED FOR UNKNOWN INDICATION
     Route: 065

REACTIONS (9)
  - Insomnia [Recovering/Resolving]
  - Mood swings [Unknown]
  - Epistaxis [Unknown]
  - Xerosis [Unknown]
  - Cheilitis [Unknown]
  - Blood triglycerides increased [Unknown]
  - Alanine aminotransferase increased [Recovered/Resolved]
  - Aspartate aminotransferase increased [Recovered/Resolved]
  - Abdominal pain upper [Recovered/Resolved]
